FAERS Safety Report 20161900 (Version 2)
Quarter: 2022Q1

REPORT INFORMATION
  Report Type: Report from Study
  Country: KR (occurrence: None)
  Receive Date: 20211208
  Receipt Date: 20220105
  Transmission Date: 20220423
  Serious: Yes (Hospitalization)
  Sender: FDA-Public Use
  Company Number: 2021A849495

PATIENT
  Age: 26087 Day
  Sex: Male
  Weight: 63.2 kg

DRUGS (3)
  1. DURVALUMAB [Suspect]
     Active Substance: DURVALUMAB
     Indication: Bile duct cancer
     Dosage: Q 4 WEEK
     Route: 042
     Dates: start: 20211027, end: 20211027
  2. CERALASERTIB [Suspect]
     Active Substance: CERALASERTIB
     Indication: Bile duct cancer
     Dosage: BID
     Route: 048
     Dates: start: 20211110, end: 20211124
  3. INVESTIGATIONAL PRODUCT [Suspect]
     Active Substance: INVESTIGATIONAL PRODUCT
     Indication: Bile duct cancer
     Route: 065

REACTIONS (3)
  - Anaemia [Recovered/Resolved]
  - Platelet count decreased [Recovered/Resolved]
  - Hepatic haemorrhage [Recovered/Resolved]

NARRATIVE: CASE EVENT DATE: 20211130
